FAERS Safety Report 9388937 (Version 3)
Quarter: 2014Q1

REPORT INFORMATION
  Report Type: Spontaneous
  Country: US (occurrence: US)
  Receive Date: 20130708
  Receipt Date: 20140305
  Transmission Date: 20141002
  Serious: Yes (Hospitalization)
  Sender: FDA-Public Use
  Company Number: US-B.I. PHARMACEUTICALS,INC./RIDGEFIELD-2013-BI-19175BP

PATIENT
  Sex: Male
  Weight: 88.45 kg

DRUGS (7)
  1. PRADAXA [Suspect]
     Indication: ATRIAL FIBRILLATION
     Dosage: 300 MG
     Route: 065
     Dates: start: 20111014, end: 20111211
  2. ASPIRIN [Concomitant]
     Dosage: 81 MG
     Route: 065
     Dates: end: 20111211
  3. PLAVIX [Concomitant]
     Dosage: 75 MG
     Route: 065
     Dates: end: 20111211
  4. LISINOPRIL [Concomitant]
     Dosage: 10 MG
     Route: 065
  5. LEXAPRO [Concomitant]
     Route: 065
  6. COREG [Concomitant]
     Dosage: 6.25 MG
     Route: 065
  7. GLYBURIDE [Concomitant]
     Dosage: 5 MG
     Route: 065

REACTIONS (3)
  - Gastrointestinal haemorrhage [Unknown]
  - Anaemia [Unknown]
  - International normalised ratio increased [Unknown]
